FAERS Safety Report 12999544 (Version 2)
Quarter: 2016Q4

REPORT INFORMATION
  Report Type: Report from Study
  Country: US (occurrence: US)
  Receive Date: 20161205
  Receipt Date: 20161230
  Transmission Date: 20170207
  Serious: Yes (Other)
  Sender: FDA-Public Use
  Company Number: US-BAYER-2016-191212

PATIENT
  Age: 48 Year
  Sex: Female
  Weight: 86.17 kg

DRUGS (8)
  1. COUMADIN [Concomitant]
     Active Substance: WARFARIN SODIUM
     Dosage: UNK
  2. TRACLEER [Concomitant]
     Active Substance: BOSENTAN
     Dosage: UNK
  3. ADEMPAS [Suspect]
     Active Substance: RIOCIGUAT
     Indication: PULMONARY HYPERTENSION
     Dosage: 1 MG, TID
     Route: 048
  4. ADEMPAS [Suspect]
     Active Substance: RIOCIGUAT
     Indication: PULMONARY HYPERTENSION
     Dosage: UNK
     Dates: start: 20160912
  5. ADEMPAS [Suspect]
     Active Substance: RIOCIGUAT
     Indication: PULMONARY HYPERTENSION
     Dosage: 0.5 MG, TID
     Route: 048
  6. TYVASO [Suspect]
     Active Substance: TREPROSTINIL
     Indication: PULMONARY ARTERIAL HYPERTENSION
     Dosage: 96 ?G, QID INHALATION
     Dates: start: 20150421
  7. ADEMPAS [Suspect]
     Active Substance: RIOCIGUAT
     Indication: PULMONARY HYPERTENSION
     Dosage: 0.5 MG, TID
     Route: 048
  8. TYVASO [Suspect]
     Active Substance: TREPROSTINIL
     Indication: PULMONARY ARTERIAL HYPERTENSION
     Dosage: UNK, INHLATION

REACTIONS (17)
  - Mastication disorder [Unknown]
  - Weight increased [Recovered/Resolved]
  - Facial paralysis [Unknown]
  - Hemianaesthesia [Unknown]
  - Oedema peripheral [Recovered/Resolved]
  - Foreign body sensation in eyes [Unknown]
  - Facial paralysis [None]
  - Constipation [Not Recovered/Not Resolved]
  - Nausea [Unknown]
  - Lacrimation increased [Unknown]
  - Motor dysfunction [Unknown]
  - Headache [Unknown]
  - Cough [Unknown]
  - Vomiting [None]
  - Palpitations [Unknown]
  - Product use issue [None]
  - Lagophthalmos [Unknown]

NARRATIVE: CASE EVENT DATE: 201608
